FAERS Safety Report 5259452-X (Version None)
Quarter: 2007Q1

REPORT INFORMATION
  Report Type: 
  Country: None (occurrence: None)
  Receive Date: 20070305
  Receipt Date: 20070220
  Transmission Date: 20070707
  Serious: Yes (Hospitalization)
  Sender: FDA-Public Use
  Company Number: 2007000328

PATIENT
  Age: 57 Year
  Sex: Female
  Weight: 72.5755 kg

DRUGS (5)
  1. ERLOTINIB(TABLET) [Suspect]
     Indication: OVARIAN CANCER
     Dosage: 150 MG (QD), ORAL
     Route: 048
     Dates: start: 20061127, end: 20070208
  2. TOPOTECAN (TOPOTECAN) [Suspect]
     Indication: OVARIAN CANCER
     Dosage: 2.16 MG, INTRAVENOUS
     Route: 042
     Dates: start: 20061127, end: 20070208
  3. ARANESP [Concomitant]
  4. ATIVAN [Concomitant]
  5. ANZEMET [Concomitant]

REACTIONS (2)
  - HYPERTENSION [None]
  - NAUSEA [None]
